FAERS Safety Report 12646344 (Version 1)
Quarter: 2016Q3

REPORT INFORMATION
  Report Type: Spontaneous
  Country: CA (occurrence: CA)
  Receive Date: 20160812
  Receipt Date: 20160812
  Transmission Date: 20161109
  Serious: Yes (Other)
  Sender: FDA-Public Use
  Company Number: CA-BAXTER-2016BAX041792

PATIENT
  Sex: Male

DRUGS (1)
  1. PRISMASOL 4 [Suspect]
     Active Substance: ANHYDROUS DEXTROSE\LACTIC ACID\MAGNESIUM CHLORIDE\POTASSIUM CHLORIDE\SODIUM BICARBONATE\SODIUM CHLORIDE
     Indication: RENAL REPLACEMENT THERAPY
     Route: 010

REACTIONS (3)
  - Blood calcium decreased [Unknown]
  - Cardiac arrest [Recovered/Resolved]
  - Product preparation error [Unknown]
